FAERS Safety Report 16912813 (Version 2)
Quarter: 2019Q4

REPORT INFORMATION
  Report Type: Spontaneous
  Country: AU (occurrence: AU)
  Receive Date: 20191014
  Receipt Date: 20191022
  Transmission Date: 20200122
  Serious: Yes (Hospitalization)
  Sender: FDA-Public Use
  Company Number: AU-ACTELION-A-CH2019-196553

PATIENT
  Age: 70 Year
  Sex: Female

DRUGS (1)
  1. OPSUMIT [Suspect]
     Active Substance: MACITENTAN
     Indication: PRODUCT USED FOR UNKNOWN INDICATION
     Dosage: 10 MG, QD
     Route: 048

REACTIONS (4)
  - Hospitalisation [Unknown]
  - Gastric haemorrhage [Recovering/Resolving]
  - Influenza [Recovering/Resolving]
  - Malaise [Recovering/Resolving]

NARRATIVE: CASE EVENT DATE: 201907
